FAERS Safety Report 6897888-1 (Version None)
Quarter: 2010Q3

REPORT INFORMATION
  Report Type: 
  Country: None (occurrence: None)
  Receive Date: 20100729
  Receipt Date: 20100705
  Transmission Date: 20110219
  Serious: Yes (Hospitalization)
  Sender: FDA-Public Use
  Company Number: PPC201000037

PATIENT
  Age: 76 Year
  Sex: Female

DRUGS (9)
  1. DIPYRIDAMOLE [Suspect]
     Indication: CARDIAC STRESS TEST
     Dosage: 46.5 MG, 46.5 MG WAS GIVEN ONCE 4 MINUTES, INTRAVENOUS
     Route: 042
     Dates: start: 20100602, end: 20100602
  2. 99MTC-TETROFOSMIN [Suspect]
     Indication: CARDIAC STRESS TEST
     Dosage: 414 MBQ RESTING + 1207 MBQ STRESS; 1207 MBQ
     Dates: start: 20100602, end: 20100602
  3. 99MTC-TETROFOSMIN [Suspect]
     Indication: SCAN MYOCARDIAL PERFUSION
     Dosage: 414 MBQ RESTING + 1207 MBQ STRESS; 1207 MBQ
     Dates: start: 20100602, end: 20100602
  4. AMINOPHYLLIN [Suspect]
     Dosage: 100 MG
     Dates: start: 20100602, end: 20100602
  5. NEXIUM [Concomitant]
  6. SYNTHROID [Concomitant]
  7. HYDROCHLOROTHIAZIDE [Concomitant]
  8. TYLENOL NO. 3 (PARACETAMOL) [Concomitant]
  9. MULTI-VITAMINS [Concomitant]

REACTIONS (7)
  - BLISTER [None]
  - DIARRHOEA [None]
  - DIZZINESS [None]
  - INJECTION SITE DISCOLOURATION [None]
  - PAIN [None]
  - RENAL FAILURE [None]
  - SKIN DISCOLOURATION [None]
